FAERS Safety Report 9263009 (Version 1)
Quarter: 2013Q2

REPORT INFORMATION
  Report Type: Spontaneous
  Country: AU (occurrence: AU)
  Receive Date: 20130430
  Receipt Date: 20130430
  Transmission Date: 20140414
  Serious: Yes (Hospitalization)
  Sender: FDA-Public Use
  Company Number: AU-ELI_LILLY_AND_COMPANY-AU201304006994

PATIENT
  Sex: 0

DRUGS (7)
  1. HUMALOG LISPRO [Suspect]
     Route: 064
  2. BLACKMORES PREGNANCY + BREAST-FEEDING FORMULA [Concomitant]
  3. CHLORPROMAZINE HYDROCHLORIDE [Concomitant]
  4. HALDOL DECANOATE [Concomitant]
  5. LITHIUM CARBONATE [Concomitant]
  6. PROTAPHANE [Concomitant]
  7. QUETIAPINE [Concomitant]

REACTIONS (5)
  - Drug withdrawal syndrome neonatal [Recovered/Resolved]
  - Feeding disorder neonatal [Recovered/Resolved]
  - Blood glucose decreased [Recovered/Resolved]
  - Cardiac murmur [Unknown]
  - Foetal exposure during pregnancy [Unknown]
